FAERS Safety Report 6690439-6 (Version None)
Quarter: 2010Q2

REPORT INFORMATION
  Report Type: 
  Country: None (occurrence: None)
  Receive Date: 20100421
  Receipt Date: 20090610
  Transmission Date: 20101027
  Serious: No
  Sender: FDA-Public Use
  Company Number: US-ASTRAZENECA-2009UW11215

PATIENT
  Age: 98 Year
  Sex: Male
  Weight: 75.7 kg

DRUGS (7)
  1. CASODEX [Suspect]
     Route: 048
     Dates: start: 20081018, end: 20090101
  2. MAXZIDE [Concomitant]
  3. LUPRON [Concomitant]
  4. CENTRUM [Concomitant]
  5. MULTIVITAMIN [Concomitant]
  6. ASPIRIN [Concomitant]
  7. VITAMINS [Concomitant]

REACTIONS (7)
  - ABDOMINAL DISTENSION [None]
  - CONSTIPATION [None]
  - DEPRESSION [None]
  - DIARRHOEA [None]
  - FATIGUE [None]
  - PROSTATIC SPECIFIC ANTIGEN INCREASED [None]
  - WEIGHT DECREASED [None]
